FAERS Safety Report 24820865 (Version 3)
Quarter: 2025Q2

REPORT INFORMATION
  Report Type: Spontaneous
  Country: US (occurrence: US)
  Receive Date: 20250108
  Receipt Date: 20250417
  Transmission Date: 20250717
  Serious: No
  Sender: SANOFI AVENTIS
  Company Number: US-SA-2025SA003025

PATIENT
  Age: 1 Year
  Sex: Male

DRUGS (2)
  1. ALPROLIX [Suspect]
     Active Substance: EFTRENONACOG ALFA
     Dosage: 1027 U, QW (EVERY TUESDAY)
     Route: 065
  2. ALPROLIX [Suspect]
     Active Substance: EFTRENONACOG ALFA
     Dosage: 1027 U, QW (EVERY TUESDAY)
     Route: 065

REACTIONS (5)
  - Contusion [Unknown]
  - Epistaxis [Unknown]
  - Head injury [Unknown]
  - Swelling face [Unknown]
  - Erythema [Unknown]

NARRATIVE: CASE EVENT DATE: 20241227
